FAERS Safety Report 23934306 (Version 2)
Quarter: 2024Q2

REPORT INFORMATION
  Report Type: Spontaneous
  Country: US (occurrence: US)
  Receive Date: 20240603
  Receipt Date: 20240613
  Transmission Date: 20240716
  Serious: Yes (Life-Threatening, Hospitalization)
  Sender: FDA-Public Use
  Company Number: US-ELI_LILLY_AND_COMPANY-US202405016898

PATIENT
  Age: 54 Year
  Sex: Male

DRUGS (1)
  1. TALTZ [Suspect]
     Active Substance: IXEKIZUMAB
     Indication: Psoriasis
     Dosage: UNK UNK, UNKNOWN
     Route: 065
     Dates: end: 202312

REACTIONS (4)
  - Myocardial infarction [Unknown]
  - Atrial fibrillation [Recovered/Resolved]
  - Sleep disorder due to a general medical condition [Unknown]
  - Weight decreased [Unknown]

NARRATIVE: CASE EVENT DATE: 20230601
